FAERS Safety Report 4598339-2 (Version None)
Quarter: 2005Q1

REPORT INFORMATION
  Report Type: 
  Country: None (occurrence: None)
  Receive Date: 20050301
  Receipt Date: 20050301
  Transmission Date: 20050727
  Serious: Yes (Hospitalization)
  Sender: FDA-Public Use
  Company Number: None

PATIENT
  Age: 69 Year
  Sex: Male
  Weight: 65 kg

DRUGS (4)
  1. IRESSA [Suspect]
     Indication: PANCREATIC CARCINOMA METASTATIC
     Dosage: 250 MG/DAY PO
     Route: 048
     Dates: start: 20040811
  2. GEMZAR [Suspect]
     Indication: PANCREATIC CARCINOMA METASTATIC
     Dosage: 2010 MG Q WEEK IV
     Route: 042
     Dates: end: 20050112
  3. WHIPPLE [Concomitant]
  4. FLUOROURACIL [Concomitant]

REACTIONS (3)
  - BACTERAEMIA [None]
  - HEPATIC LESION [None]
  - LIVER ABSCESS [None]
